FAERS Safety Report 5898451-1 (Version None)
Quarter: 2008Q3

REPORT INFORMATION
  Report Type: 
  Country: None (occurrence: None)
  Receive Date: 20080925
  Receipt Date: 20071112
  Transmission Date: 20090109
  Serious: No
  Sender: FDA-Public Use
  Company Number: A0693908A

PATIENT
  Age: 55 Year
  Sex: Female

DRUGS (7)
  1. WELLBUTRIN XL [Suspect]
     Indication: DEPRESSION
     Dosage: 300MG PER DAY
     Route: 048
     Dates: start: 20060101
  2. ATIVAN [Concomitant]
  3. LEVOTHROID [Concomitant]
  4. HORMONE TREATMENT [Concomitant]
  5. FENTANYL [Concomitant]
  6. ZANTAC [Concomitant]
  7. ACTONEL [Concomitant]

REACTIONS (1)
  - PANIC ATTACK [None]
